FAERS Safety Report 15947605 (Version 3)
Quarter: 2019Q1

REPORT INFORMATION
  Report Type: Spontaneous
  Country: US (occurrence: US)
  Receive Date: 20190211
  Receipt Date: 20190306
  Transmission Date: 20190417
  Serious: No
  Sender: FDA-Public Use
  Company Number: US-PFIZER INC-2019053857

PATIENT
  Age: 59 Year
  Sex: Female
  Weight: 57.15 kg

DRUGS (14)
  1. CALCIUM WITH D3 [Concomitant]
     Indication: OSTEOPOROSIS
     Dosage: 1 DF, DAILY [CALCIUM: 1200MG, D3: 3000MG]
     Route: 048
  2. XELJANZ XR [Suspect]
     Active Substance: TOFACITINIB CITRATE
     Indication: RHEUMATOID ARTHRITIS
     Dosage: 11 MG, 1X/DAY
     Route: 048
     Dates: start: 201901
  3. CYMBALTA [Concomitant]
     Active Substance: DULOXETINE HYDROCHLORIDE
     Indication: DEPRESSION
     Dosage: 60 UNK, UNK
     Route: 048
  4. ATENOLOL. [Concomitant]
     Active Substance: ATENOLOL
     Indication: HEART RATE IRREGULAR
     Dosage: 25 MG, 1X/DAY
     Route: 048
     Dates: start: 2018
  5. BIOTE HORMONE PELLET THERAPY [ESTROGEN NOS;TESTOSTERONE] [Concomitant]
     Indication: HORMONE REPLACEMENT THERAPY
     Dosage: UNK
     Route: 058
     Dates: start: 20190110
  6. XELJANZ XR [Suspect]
     Active Substance: TOFACITINIB CITRATE
     Dosage: 11 MG, DAILY
     Dates: start: 20190201
  7. OMEPRAZOLE. [Concomitant]
     Active Substance: OMEPRAZOLE
     Indication: GASTROOESOPHAGEAL REFLUX DISEASE
     Dosage: 40 MG, 1X/DAY
     Route: 048
     Dates: start: 2014
  8. ATORVASTATIN [Concomitant]
     Active Substance: ATORVASTATIN
     Indication: BLOOD CHOLESTEROL INCREASED
     Dosage: 20 MG, 1X/DAY
     Route: 048
     Dates: start: 201603
  9. BIOTIN [Concomitant]
     Active Substance: BIOTIN
     Indication: ALOPECIA
     Dosage: 5000 UG, 1X/DAY
     Route: 048
     Dates: start: 201812
  10. VITAMIN B COMPLEX [Concomitant]
     Active Substance: CYANOCOBALAMIN\DEXPANTHENOL\NIACINAMIDE\PYRIDOXINE HYDROCHLORIDE\RIBOFLAVIN 5^-PHOSPHATE SODIUM\THIAMINE HYDROCHLORIDE\VITAMIN B COMPLEX
     Indication: VITAMIN SUPPLEMENTATION
     Dosage: UNK
     Dates: start: 201810
  11. COLLAGEN [Concomitant]
     Active Substance: COLLAGEN
     Indication: ALOPECIA
     Dosage: UNK UNK, 1X/DAY [MIXED WITH WATER AND SWALLOWED BY MOUTH ONCE DAILY]
     Route: 048
     Dates: start: 201812
  12. COLLAGEN [Concomitant]
     Active Substance: COLLAGEN
     Indication: BONE DISORDER
  13. CALCIUM WITH D3 [Concomitant]
     Indication: VITAMIN SUPPLEMENTATION
  14. CYMBALTA [Concomitant]
     Active Substance: DULOXETINE HYDROCHLORIDE
     Dosage: 30 MG, 1X/DAY
     Route: 048

REACTIONS (4)
  - Bacterial vaginosis [Not Recovered/Not Resolved]
  - Bladder disorder [Unknown]
  - Urinary tract infection [Not Recovered/Not Resolved]
  - Herpes simplex [Unknown]

NARRATIVE: CASE EVENT DATE: 201901
